FAERS Safety Report 9264190 (Version 1)
Quarter: 2013Q2

REPORT INFORMATION
  Report Type: Spontaneous
  Country: US (occurrence: US)
  Receive Date: 20130430
  Receipt Date: 20130430
  Transmission Date: 20140414
  Serious: Yes (Other)
  Sender: FDA-Public Use
  Company Number: US-PFIZER INC-2013099006

PATIENT
  Age: 86 Year
  Sex: Male

DRUGS (6)
  1. ELIQUIS [Suspect]
     Indication: ATRIAL FIBRILLATION
     Dosage: 5 MG, 2X/DAY
     Route: 048
     Dates: start: 20130213, end: 20130416
  2. AMIODARONE HCL [Suspect]
     Indication: CARDIOVASCULAR DISORDER
     Dosage: 200 MG, 1X/DAY
  3. WARFARIN SODIUM [Suspect]
     Dosage: UNK
  4. ZETIA [Suspect]
     Dosage: 10 MG, 1X/DAY
  5. DULCOLAX [Suspect]
     Dosage: UNK
  6. MULTIVITAMINS [Suspect]
     Dosage: UNK

REACTIONS (2)
  - Cardioversion [Unknown]
  - Pain in extremity [Recovered/Resolved]
